FAERS Safety Report 7564536-7 (Version None)
Quarter: 2011Q2

REPORT INFORMATION
  Report Type: 
  Country: None (occurrence: None)
  Receive Date: 20110622
  Receipt Date: 20100518
  Transmission Date: 20111010
  Serious: Yes (Other)
  Sender: FDA-Public Use
  Company Number: US-MYLANLABS-2010S1008495

PATIENT
  Age: 69 Year
  Sex: Female

DRUGS (7)
  1. LEVOTHYROXINE SODIUM [Concomitant]
     Indication: HYPOTHYROIDISM
     Route: 048
  2. NEURONTIN [Concomitant]
     Indication: NEURALGIA
     Route: 048
  3. GLIPIZIDE [Concomitant]
     Indication: TYPE 2 DIABETES MELLITUS
     Route: 048
  4. TYLENOL-500 [Concomitant]
     Route: 048
  5. LORATADINE [Concomitant]
     Indication: HYPERSENSITIVITY
     Route: 048
  6. ATENOLOL [Concomitant]
     Indication: HYPERTENSION
     Route: 048
  7. CLOZAPINE [Suspect]
     Indication: SCHIZOPHRENIA
     Route: 048
     Dates: start: 20100401, end: 20100511

REACTIONS (1)
  - GRANULOCYTOPENIA [None]
